FAERS Safety Report 8493613 (Version 4)
Quarter: 2012Q4

REPORT INFORMATION
  Report Type: 
  Country: DE (occurrence: DE)
  Receive Date: 20120404
  Receipt Date: 20120913
  Transmission Date: 20130627
  Serious: Yes (Hospitalization)
  Sender: FDA-Public Use
  Company Number: DE-NOVOPROD-348482

PATIENT
  Age: 13 Year
  Sex: Male
  Weight: 47.3 kg

DRUGS (3)
  1. NOVOSEVEN [Suspect]
     Indication: FACTOR VIII DEFICIENCY
     Dosage: 8+5mg every second day
     Route: 042
     Dates: start: 2008
  2. NOVOSEVEN [Suspect]
     Dosage: 8+5mg every second day
     Route: 042
  3. IBUPROFEN [Concomitant]
     Indication: MUSCLE HAEMORRHAGE
     Dosage: UNK
     Route: 048
     Dates: start: 20120320

REACTIONS (4)
  - Haematuria [Recovered/Resolved]
  - Back pain [Unknown]
  - Abdominal pain [Unknown]
  - Vomiting [Unknown]
